FAERS Safety Report 4799669-1 (Version None)
Quarter: 2005Q4

REPORT INFORMATION
  Report Type: 
  Country: None (occurrence: None)
  Receive Date: 20051013
  Receipt Date: 20050930
  Transmission Date: 20060501
  Serious: Yes (Death)
  Sender: FDA-Public Use
  Company Number: 2005JP001331

PATIENT
  Age: 74 Year
  Sex: Male
  Weight: 42 kg

DRUGS (16)
  1. FUNGUARD                   (MICAFUNGIN) [Suspect]
     Indication: INFECTION
     Dosage: SEE IMAGE, IV DRIP
     Route: 041
     Dates: start: 20050526, end: 20050530
  2. FUNGUARD                   (MICAFUNGIN) [Suspect]
     Indication: INFECTION
     Dosage: SEE IMAGE, IV DRIP
     Route: 041
     Dates: start: 20050531, end: 20050531
  3. TARGOCID [Suspect]
     Dosage: 200.00 MG, D, IV NOS
     Route: 042
     Dates: start: 20050526, end: 20050531
  4. ADONA (AC-17) (CARBAZOCHROME SODIUM SULFONATE) [Concomitant]
  5. TRANSAMIN (TRANEXAMIC ACID) INJECTION [Concomitant]
  6. BLUBATOSINE (ARBEKACIN SULFATE) INJECTION [Concomitant]
  7. PAZUCROSS INJECTION [Concomitant]
  8. NEUTROGIN (LENOGRASTIM) INJECTION [Concomitant]
  9. GASTER INJECTION [Concomitant]
  10. UNASYN S (AMPICILLIN SODIUM, SULBACTAM SODIUM) INJECTION [Concomitant]
  11. CYTARABINE [Concomitant]
  12. PREDNISOLONE [Concomitant]
  13. LASIX/SWE/ (FUROSEMIDE) INJECTION [Concomitant]
  14. MEYLON (SODIUM BICARBONATE) INJECTION [Concomitant]
  15. PONTAL (MEFENAMIC ACID) SYRUP [Concomitant]
  16. VASOLAN  (VERAPAMIL HYDROCHLORIDE) INJECTION [Concomitant]

REACTIONS (7)
  - ACUTE MYELOID LEUKAEMIA [None]
  - ASPARTATE AMINOTRANSFERASE INCREASED [None]
  - BLOOD ALKALINE PHOSPHATASE INCREASED [None]
  - BLOOD CREATININE INCREASED [None]
  - BLOOD LACTATE DEHYDROGENASE INCREASED [None]
  - BLOOD POTASSIUM INCREASED [None]
  - BLOOD UREA INCREASED [None]
